FAERS Safety Report 12288765 (Version 1)
Quarter: 2016Q2

REPORT INFORMATION
  Report Type: Spontaneous
  Country: DE (occurrence: DE)
  Receive Date: 20160421
  Receipt Date: 20160421
  Transmission Date: 20160815
  Serious: Yes (Hospitalization)
  Sender: FDA-Public Use
  Company Number: DE-UCBSA-2016013116

PATIENT
  Age: 6 Year
  Sex: Male
  Weight: 24 kg

DRUGS (4)
  1. VALPROIC ACID. [Suspect]
     Active Substance: VALPROIC ACID
     Indication: PRODUCT USED FOR UNKNOWN INDICATION
     Dosage: 150 MG, 2X/DAY (BID)
     Dates: start: 20160330
  2. KEPPRA [Suspect]
     Active Substance: LEVETIRACETAM
     Indication: OFF LABEL USE
     Dosage: 1800 MG, ONE TIME DOSE (600 MG 3 TAB)
     Route: 048
     Dates: start: 20160409, end: 20160409
  3. VALPROIC ACID. [Suspect]
     Active Substance: VALPROIC ACID
     Dosage: 150 MG (SKIPPED HIS EVENING DOSE)
     Route: 048
     Dates: start: 20160409, end: 20160409
  4. KEPPRA [Suspect]
     Active Substance: LEVETIRACETAM
     Indication: PYREXIA
     Dosage: 600 MG, 2X/DAY (BID)

REACTIONS (2)
  - Accidental exposure to product by child [Unknown]
  - Off label use [Unknown]

NARRATIVE: CASE EVENT DATE: 20160409
